FAERS Safety Report 7337267-6 (Version None)
Quarter: 2011Q1

REPORT INFORMATION
  Report Type: 
  Country: None (occurrence: None)
  Receive Date: 20110308
  Receipt Date: 20110304
  Transmission Date: 20110831
  Serious: Yes (Death)
  Sender: FDA-Public Use
  Company Number: US-CEPHALON-2011000763

PATIENT
  Sex: Male
  Weight: 71 kg

DRUGS (1)
  1. TREANDA [Suspect]
     Route: 042
     Dates: start: 20100623, end: 20100715

REACTIONS (1)
  - B-CELL LYMPHOMA [None]
